FAERS Safety Report 25802873 (Version 1)
Quarter: 2025Q3

REPORT INFORMATION
  Report Type: Spontaneous
  Country: US (occurrence: US)
  Receive Date: 20250915
  Receipt Date: 20250915
  Transmission Date: 20251021
  Serious: No
  Sender: DR REDDYS
  Company Number: US-DRL-USA-USA/2025/09/013477

PATIENT
  Age: 16 Year

DRUGS (2)
  1. ZENATANE [Suspect]
     Active Substance: ISOTRETINOIN
     Indication: Product used for unknown indication
     Dosage: A TOTAL OF 70 MG DAILY = (30+40) MG?NDC NUMBER: 55111-0113-81
     Route: 065
     Dates: start: 20250402
  2. ZENATANE [Suspect]
     Active Substance: ISOTRETINOIN
     Dosage: A TOTAL OF 70MG DAILY =(30+40)MG?NDC NUMBER: 55111-0137-81
     Route: 065
     Dates: start: 20250402

REACTIONS (1)
  - Product prescribing issue [Unknown]

NARRATIVE: CASE EVENT DATE: 20250821
